FAERS Safety Report 5695551-6 (Version None)
Quarter: 2008Q2

REPORT INFORMATION
  Report Type: 
  Country: None (occurrence: None)
  Receive Date: 20080407
  Receipt Date: 20080327
  Transmission Date: 20081010
  Serious: Yes (Death, Hospitalization)
  Sender: FDA-Public Use
  Company Number: JP-JNJFOC-20070904800

PATIENT
  Sex: Female
  Weight: 44 kg

DRUGS (7)
  1. REMICADE [Suspect]
     Route: 042
  2. REMICADE [Suspect]
     Indication: BEHCET'S SYNDROME
     Dosage: TOTAL OF 2 INFUSIONS
     Route: 042
  3. RIFAMPIN [Suspect]
     Indication: PROPHYLAXIS
     Route: 048
  4. AZULFIDINE EN-TABS [Concomitant]
     Route: 048
  5. ADRENAL HORMONE PREPARATION [Concomitant]
  6. ISONIAZID [Concomitant]
  7. ISONIAZID [Concomitant]

REACTIONS (5)
  - ATYPICAL MYCOBACTERIAL INFECTION [None]
  - FUNGAL INFECTION [None]
  - LIVER DISORDER [None]
  - LUNG INFECTION PSEUDOMONAL [None]
  - STAPHYLOCOCCAL SEPSIS [None]
